FAERS Safety Report 4497679-5 (Version None)
Quarter: 2004Q4

REPORT INFORMATION
  Report Type: 
  Country: None (occurrence: None)
  Receive Date: 20041108
  Receipt Date: 20041026
  Transmission Date: 20050328
  Serious: Yes (Hospitalization)
  Sender: FDA-Public Use
  Company Number: US-JNJFOC-20040702686

PATIENT
  Age: 83 Year
  Sex: Female
  Weight: 61.24 kg

DRUGS (2)
  1. DITROPAN XL [Suspect]
     Route: 049
  2. DITROPAN XL [Suspect]
     Route: 049

REACTIONS (2)
  - RECTAL HAEMORRHAGE [None]
  - RENAL HAEMORRHAGE [None]
